FAERS Safety Report 22111317 (Version 1)
Quarter: 2023Q1

REPORT INFORMATION
  Report Type: Spontaneous
  Country: PY (occurrence: PY)
  Receive Date: 20230317
  Receipt Date: 20230317
  Transmission Date: 20230418
  Serious: Yes (Death, Other)
  Sender: FDA-Public Use
  Company Number: PY-BRISTOL-MYERS SQUIBB COMPANY-2023-035820

PATIENT
  Age: 41 Year
  Sex: Male

DRUGS (1)
  1. SPRYCEL [Suspect]
     Active Substance: DASATINIB
     Indication: Chronic myeloid leukaemia
     Dosage: 70 MG X 2 TABLETS

REACTIONS (2)
  - Cerebral haemorrhage [Fatal]
  - Blast crisis in myelogenous leukaemia [Fatal]
